FAERS Safety Report 12470491 (Version 2)
Quarter: 2016Q3

REPORT INFORMATION
  Report Type: Spontaneous
  Country: US (occurrence: US)
  Receive Date: 20160616
  Receipt Date: 20160915
  Transmission Date: 20161109
  Serious: No
  Sender: FDA-Public Use
  Company Number: US-AUROBINDO-AUR-APU-2016-05982

PATIENT
  Sex: Male
  Weight: 61.68 kg

DRUGS (1)
  1. ENTECAVIR TABLETS 0.5MG [Suspect]
     Active Substance: ENTECAVIR
     Indication: HEPATITIS B
     Dosage: ONE TABLET DAILY
     Route: 065
     Dates: start: 20160320

REACTIONS (2)
  - Gastrointestinal disorder [Not Recovered/Not Resolved]
  - Product substitution issue [Not Recovered/Not Resolved]
